FAERS Safety Report 12115349 (Version 1)
Quarter: 2016Q1

REPORT INFORMATION
  Report Type: Spontaneous
  Country: US (occurrence: US)
  Receive Date: 20160225
  Receipt Date: 20160225
  Transmission Date: 20160526
  Serious: No
  Sender: FDA-Public Use
  Company Number: US-BIOGEN-2014BI067324

PATIENT
  Age: 56 Year
  Sex: Female

DRUGS (4)
  1. AVONEX [Suspect]
     Active Substance: INTERFERON BETA-1A
     Indication: MULTIPLE SCLEROSIS
     Route: 030
     Dates: start: 20120719, end: 20120915
  2. AVONEX [Suspect]
     Active Substance: INTERFERON BETA-1A
     Route: 030
     Dates: start: 20150325
  3. AVONEX [Suspect]
     Active Substance: INTERFERON BETA-1A
     Route: 030
     Dates: start: 20121031
  4. AVONEX [Suspect]
     Active Substance: INTERFERON BETA-1A
     Route: 030
     Dates: start: 20130211

REACTIONS (8)
  - Pyrexia [Recovered/Resolved]
  - Pain [Unknown]
  - Rash [Recovered/Resolved]
  - Pruritus [Recovered/Resolved]
  - Herpes zoster [Not Recovered/Not Resolved]
  - Hepatic enzyme increased [Unknown]
  - Injection site haemorrhage [Unknown]
  - Influenza like illness [Recovered/Resolved]

NARRATIVE: CASE EVENT DATE: 20160113
